FAERS Safety Report 4953705-8 (Version None)
Quarter: 2006Q1

REPORT INFORMATION
  Report Type: 
  Country: None (occurrence: None)
  Receive Date: 20060324
  Receipt Date: 20051215
  Transmission Date: 20060701
  Serious: Yes (Death)
  Sender: FDA-Public Use
  Company Number: US-BOEHRINGER INGELHEIM PHARMACEUTICALS, INC.-2005-BP-21505BP

PATIENT

DRUGS (2)
  1. APTIVUS [Suspect]
     Dosage: TPV/RTV: 500/200 MG BID
     Route: 048
  2. OXYCONTIN [Suspect]

REACTIONS (1)
  - OVERDOSE [None]
